FAERS Safety Report 6599035-2 (Version None)
Quarter: 2010Q1

REPORT INFORMATION
  Report Type: 
  Country: None (occurrence: None)
  Receive Date: 20100224
  Receipt Date: 20090706
  Transmission Date: 20100710
  Serious: No
  Sender: FDA-Public Use
  Company Number: US-BRISTOL-MYERS SQUIBB COMPANY-14694236

PATIENT
  Age: 59 Year
  Sex: Female

DRUGS (2)
  1. GLUCOPHAGE [Suspect]
     Dosage: EVERY 6 HRS; DURATION OF THERAPY:7-8MTHS(ALSO REPORTED AS 1 YR)
  2. LANTUS [Suspect]
     Indication: TYPE 2 DIABETES MELLITUS
     Dosage: 1 DF= 70 UNITS; SOLN FOR INJ;LANTUS SOLOSTAR
     Route: 058
     Dates: start: 20080101

REACTIONS (2)
  - DIABETES MELLITUS INADEQUATE CONTROL [None]
  - INJECTION SITE IRRITATION [None]
